FAERS Safety Report 24217049 (Version 1)
Quarter: 2024Q3

REPORT INFORMATION
  Report Type: Spontaneous
  Country: US (occurrence: None)
  Receive Date: 20240815
  Receipt Date: 20240815
  Transmission Date: 20241016
  Serious: No
  Sender: Public
  Company Number: None

PATIENT
  Age: 64 Year
  Sex: Male
  Weight: 74.25 kg

DRUGS (5)
  1. AMLODIPINE BESYLATE [Suspect]
     Active Substance: AMLODIPINE BESYLATE
     Indication: Hypertension
     Dosage: OTHER QUANTITY : 1 TABLET(S);?FREQUENCY : AT BEDTIME;?
     Route: 048
  2. LOSARTAN [Suspect]
     Active Substance: LOSARTAN\LOSARTAN POTASSIUM
     Indication: Hypertension
     Dosage: OTHER QUANTITY : 1 TABLET(S);?FREQUENCY : AT BEDTIME;?
     Route: 048
  3. TAMSULOSIN [Concomitant]
  4. AMLODIPINE [Concomitant]
  5. EMERGEN-C [Concomitant]
     Active Substance: VITAMINS

REACTIONS (9)
  - Dizziness [None]
  - Nausea [None]
  - Abdominal discomfort [None]
  - Pain [None]
  - Fatigue [None]
  - Feeling cold [None]
  - Pollakiuria [None]
  - Thirst [None]
  - Nightmare [None]
